FAERS Safety Report 22278401 (Version 2)
Quarter: 2023Q4

REPORT INFORMATION
  Report Type: Report from Study
  Country: US (occurrence: US)
  Receive Date: 20230503
  Receipt Date: 20231011
  Transmission Date: 20240109
  Serious: Yes (Death, Other)
  Sender: FDA-Public Use
  Company Number: US-Ipsen Biopharmaceuticals, Inc.-2023-09994

PATIENT
  Age: 63 Year
  Sex: Female

DRUGS (1)
  1. SOMATULINE DEPOT [Suspect]
     Active Substance: LANREOTIDE ACETATE
     Indication: Carcinoid tumour
     Route: 058
     Dates: start: 20220309

REACTIONS (1)
  - Death [Fatal]

NARRATIVE: CASE EVENT DATE: 20220826
